FAERS Safety Report 7117179-3 (Version None)
Quarter: 2010Q4

REPORT INFORMATION
  Report Type: 
  Country: None (occurrence: None)
  Receive Date: 20101115
  Receipt Date: 20101030
  Transmission Date: 20110411
  Serious: Yes (Other)
  Sender: FDA-Public Use
  Company Number: 2010AP002314

PATIENT
  Age: 72 Year
  Sex: Male

DRUGS (5)
  1. PREDNISOLONE [Suspect]
     Indication: B-CELL LYMPHOMA
  2. CYCLOPHOSPHAMIDE [Suspect]
     Indication: B-CELL LYMPHOMA
  3. VINCRISTINE [Suspect]
     Indication: B-CELL LYMPHOMA
  4. DOXORUBICIN HCL [Suspect]
     Indication: B-CELL LYMPHOMA
  5. PREDNISONE [Suspect]
     Indication: B-CELL LYMPHOMA

REACTIONS (4)
  - ASCITES [None]
  - NODULAR REGENERATIVE HYPERPLASIA [None]
  - PORTAL HYPERTENSION [None]
  - VARICES OESOPHAGEAL [None]
